FAERS Safety Report 7985078-0 (Version None)
Quarter: 2011Q4

REPORT INFORMATION
  Report Type: 
  Country: None (occurrence: None)
  Receive Date: 20111216
  Receipt Date: 20110303
  Transmission Date: 20120403
  Serious: No
  Sender: FDA-Public Use
  Company Number: US-MYLANLABS-2011S1004533

PATIENT
  Age: 7 Decade
  Sex: Male

DRUGS (6)
  1. OXYGEN [Concomitant]
  2. ADVAIR DISKUS 100/50 [Concomitant]
  3. PROAIR HFA [Concomitant]
  4. PROPRANOLOL HYDROCHLORIDE [Suspect]
     Indication: HEART RATE IRREGULAR
     Route: 048
     Dates: start: 20090701, end: 20110201
  5. VENTOLIN [Concomitant]
  6. ANTITHROMBOTIC AGENTS [Concomitant]

REACTIONS (2)
  - DYSPNOEA [None]
  - ASTHMA [None]
